FAERS Safety Report 16719895 (Version 8)
Quarter: 2020Q3

REPORT INFORMATION
  Report Type: Spontaneous
  Country: US (occurrence: US)
  Receive Date: 20190820
  Receipt Date: 20200805
  Transmission Date: 20201102
  Serious: No
  Sender: FDA-Public Use
  Company Number: US-PFIZER INC-2019353465

PATIENT
  Age: 53 Year
  Sex: Female

DRUGS (4)
  1. IBRANCE [Suspect]
     Active Substance: PALBOCICLIB
     Dosage: 125 MG, 1X/DAY
     Dates: start: 20190803
  2. IBRANCE [Suspect]
     Active Substance: PALBOCICLIB
     Indication: BREAST CANCER FEMALE
     Dosage: 125 MG, DAILY
     Route: 048
     Dates: start: 20190802
  3. IBRANCE [Suspect]
     Active Substance: PALBOCICLIB
     Indication: BREAST CANCER FEMALE
     Dosage: 125 MG, CYCLIC (TAKE FOR 21 DAYS, THEN 7 DAYS OFF)
     Route: 048
     Dates: start: 20190807
  4. IBRANCE [Suspect]
     Active Substance: PALBOCICLIB
     Dosage: 125 MG, CYCLIC (QD (ONCE DAILY) X 21 DAYS Q (EVERY) 28 DAYS)
     Dates: start: 20200115

REACTIONS (9)
  - Fatigue [Not Recovered/Not Resolved]
  - Headache [Unknown]
  - Back pain [Unknown]
  - Neck pain [Unknown]
  - Tearfulness [Unknown]
  - Stomatitis [Not Recovered/Not Resolved]
  - Arthralgia [Unknown]
  - Alopecia [Unknown]
  - Acne [Unknown]

NARRATIVE: CASE EVENT DATE: 2019
